FAERS Safety Report 15494065 (Version 2)
Quarter: 2018Q4

REPORT INFORMATION
  Report Type: Spontaneous
  Country: US (occurrence: US)
  Receive Date: 20181012
  Receipt Date: 20181024
  Transmission Date: 20190205
  Serious: Yes (Other)
  Sender: FDA-Public Use
  Company Number: US-MALLINCKRODT-T201804335

PATIENT
  Age: 24 Year
  Sex: Female

DRUGS (1)
  1. H.P. ACTHAR [Suspect]
     Active Substance: CORTICOTROPIN
     Indication: MULTIPLE SCLEROSIS
     Dosage: 1 ML, DAILY FOR 5 DAYS
     Route: 058
     Dates: start: 201806, end: 201806

REACTIONS (5)
  - Multiple sclerosis [Unknown]
  - Aggression [Unknown]
  - Pain [Unknown]
  - Insomnia [Unknown]
  - Drug hypersensitivity [Unknown]

NARRATIVE: CASE EVENT DATE: 201806
